FAERS Safety Report 20706092 (Version 1)
Quarter: 2022Q2

REPORT INFORMATION
  Report Type: Spontaneous
  Country: US (occurrence: US)
  Receive Date: 20220413
  Receipt Date: 20220413
  Transmission Date: 20220721
  Serious: No
  Sender: FDA-Public Use
  Company Number: US-MYLANLABS-2022M1020158

PATIENT
  Sex: Female

DRUGS (1)
  1. CLONIDINE TRANSDERMAL SYSTEM [Interacting]
     Active Substance: CLONIDINE
     Indication: Product used for unknown indication
     Dosage: UNK

REACTIONS (2)
  - Mobility decreased [Unknown]
  - Burning sensation [Unknown]
